FAERS Safety Report 12826539 (Version 3)
Quarter: 2019Q1

REPORT INFORMATION
  Report Type: Spontaneous
  Country: US (occurrence: US)
  Receive Date: 20161006
  Receipt Date: 20190128
  Transmission Date: 20190417
  Serious: No
  Sender: FDA-Public Use
  Company Number: US-JAZZ-2016-US-012819

PATIENT
  Sex: Female

DRUGS (39)
  1. DEXFERRUM [Concomitant]
     Active Substance: IRON DEXTRAN
  2. AMITRIPTYLINE HCL [Concomitant]
     Active Substance: AMITRIPTYLINE
  3. MAXALT-MLT [Concomitant]
     Active Substance: RIZATRIPTAN BENZOATE
  4. DILAUDID [Concomitant]
     Active Substance: HYDROMORPHONE HYDROCHLORIDE
  5. LEVOTHYROXINE. [Concomitant]
     Active Substance: LEVOTHYROXINE
  6. DUONEB [Concomitant]
     Active Substance: ALBUTEROL SULFATE\IPRATROPIUM BROMIDE
  7. COMBIVENT RESPIMAT [Concomitant]
     Active Substance: ALBUTEROL SULFATE\IPRATROPIUM BROMIDE
  8. XYREM [Suspect]
     Active Substance: SODIUM OXYBATE
     Indication: NARCOLEPSY
     Dosage: 2.25 G, BID
     Route: 048
     Dates: start: 201506, end: 201506
  9. VERAPAMIL [Concomitant]
     Active Substance: VERAPAMIL HYDROCHLORIDE
  10. ZOLPIDEM TARTRATE. [Concomitant]
     Active Substance: ZOLPIDEM TARTRATE
  11. COENZYME Q10 [Concomitant]
     Active Substance: UBIDECARENONE
  12. BOTOX [Concomitant]
     Active Substance: ONABOTULINUMTOXINA
  13. FIORICET [Concomitant]
     Active Substance: ACETAMINOPHEN\BUTALBITAL\CAFFEINE
  14. XYREM [Suspect]
     Active Substance: SODIUM OXYBATE
     Dosage: 3 G, BID
     Route: 048
     Dates: start: 201506, end: 201508
  15. DOLOBID [Concomitant]
     Active Substance: DIFLUNISAL
  16. VITAMIN D3 [Concomitant]
     Active Substance: CHOLECALCIFEROL
  17. DULERA [Concomitant]
     Active Substance: FORMOTEROL FUMARATE DIHYDRATE\MOMETASONE FUROATE
  18. DYMISTA [Concomitant]
     Active Substance: AZELASTINE HYDROCHLORIDE\FLUTICASONE PROPIONATE
  19. BREO ELLIPTA [Concomitant]
     Active Substance: FLUTICASONE FUROATE\VILANTEROL TRIFENATATE
  20. OMEPRAZOLE. [Concomitant]
     Active Substance: OMEPRAZOLE
  21. IRON [Concomitant]
     Active Substance: IRON
  22. CYMBALTA [Concomitant]
     Active Substance: DULOXETINE HYDROCHLORIDE
  23. VITAMIN D [Concomitant]
     Active Substance: CHOLECALCIFEROL
  24. XYREM [Suspect]
     Active Substance: SODIUM OXYBATE
     Dosage: 2.25 G, BID
     Route: 048
     Dates: start: 201508
  25. AMBIEN [Concomitant]
     Active Substance: ZOLPIDEM TARTRATE
  26. ALVESCO [Concomitant]
     Active Substance: CICLESONIDE
  27. LYRICA [Concomitant]
     Active Substance: PREGABALIN
  28. AMITIZA [Concomitant]
     Active Substance: LUBIPROSTONE
  29. SYMBICORT [Concomitant]
     Active Substance: BUDESONIDE\FORMOTEROL FUMARATE DIHYDRATE
  30. IRON DEXTRAN [Concomitant]
     Active Substance: IRON DEXTRAN
  31. LASIX M [Concomitant]
     Active Substance: FUROSEMIDE
  32. VITAMIN B12 [Concomitant]
     Active Substance: CYANOCOBALAMIN
  33. TESSALON [Concomitant]
     Active Substance: BENZONATATE
  34. XOPENEX HFA [Concomitant]
     Active Substance: LEVALBUTEROL TARTRATE
  35. CYANOCOBALAMIN. [Concomitant]
     Active Substance: CYANOCOBALAMIN
  36. DIFLUCAN [Concomitant]
     Active Substance: FLUCONAZOLE
  37. NYSTATIN. [Concomitant]
     Active Substance: NYSTATIN
  38. SYNTHROID [Concomitant]
     Active Substance: LEVOTHYROXINE SODIUM
  39. CLARITIN-D NOS [Concomitant]
     Active Substance: LORATADINE\PSEUDOEPHEDRINE SULFATE

REACTIONS (5)
  - Vocal cord dysfunction [Unknown]
  - Oedema peripheral [Not Recovered/Not Resolved]
  - Restlessness [Unknown]
  - Vitamin B complex deficiency [Recovering/Resolving]
  - Therapeutic response decreased [Unknown]
